FAERS Safety Report 25286000 (Version 1)
Quarter: 2025Q2

REPORT INFORMATION
  Report Type: Spontaneous
  Country: US (occurrence: US)
  Receive Date: 20250509
  Receipt Date: 20250509
  Transmission Date: 20250717
  Serious: Yes (Hospitalization, Other)
  Sender: AUROBINDO
  Company Number: US-MLMSERVICE-20250422-PI488847-00111-1

PATIENT
  Age: 75 Year
  Sex: Male

DRUGS (3)
  1. SULFAMETHOXAZOLE\TRIMETHOPRIM [Suspect]
     Active Substance: SULFAMETHOXAZOLE\TRIMETHOPRIM
     Indication: Product used for unknown indication
     Route: 065
  2. PANTOPRAZOLE [Concomitant]
     Active Substance: PANTOPRAZOLE
     Indication: Dysphagia
     Dosage: 40 MILLIGRAM, TWO TIMES A DAY
     Route: 042
  3. PANTOPRAZOLE [Concomitant]
     Active Substance: PANTOPRAZOLE
     Indication: Vomiting

REACTIONS (7)
  - Nephropathy toxic [Unknown]
  - Impaired gastric emptying [Unknown]
  - Ileus [Unknown]
  - Duodenal ulcer [Unknown]
  - Necrotising oesophagitis [Recovering/Resolving]
  - Leukocytosis [Unknown]
  - Duodenitis [Unknown]
